FAERS Safety Report 23572131 (Version 4)
Quarter: 2024Q4

REPORT INFORMATION
  Report Type: Spontaneous
  Country: US (occurrence: US)
  Receive Date: 20240227
  Receipt Date: 20241203
  Transmission Date: 20250115
  Serious: No
  Sender: SANOFI AVENTIS
  Company Number: US-SA-SAC20240222000557

PATIENT
  Age: 82 Year
  Sex: Male
  Weight: 83 kg

DRUGS (4)
  1. CAPRELSA [Suspect]
     Active Substance: VANDETANIB
     Indication: Thyroid cancer
     Dosage: 300 MG, QD
     Route: 048
     Dates: start: 20240120, end: 2024
  2. CAPRELSA [Suspect]
     Active Substance: VANDETANIB
     Dosage: 300 MG, QD
     Route: 048
     Dates: start: 2024
  3. PLAVIX [Concomitant]
     Active Substance: CLOPIDOGREL BISULFATE
     Dosage: UNK
     Route: 065
  4. LIPITOR [Concomitant]
     Active Substance: ATORVASTATIN CALCIUM
     Dosage: UNK
     Route: 065

REACTIONS (14)
  - Fungal infection [Recovering/Resolving]
  - Skin fissures [Unknown]
  - Dizziness [Unknown]
  - Taste disorder [Unknown]
  - Blood calcitonin increased [Unknown]
  - Lymphadenopathy [Unknown]
  - Calcinosis [Unknown]
  - Dyspnoea [Unknown]
  - Blood urine present [Unknown]
  - Diarrhoea [Recovered/Resolved]
  - Blood pressure increased [Unknown]
  - Rash [Unknown]
  - Decreased appetite [Unknown]
  - Epistaxis [Unknown]

NARRATIVE: CASE EVENT DATE: 20240101
